FAERS Safety Report 6217505-3 (Version None)
Quarter: 2009Q2

REPORT INFORMATION
  Report Type: 
  Country: None (occurrence: None)
  Receive Date: 20090608
  Receipt Date: 20090122
  Transmission Date: 20091009
  Serious: No
  Sender: FDA-Public Use
  Company Number: A0761116A

PATIENT
  Age: 53 Year
  Sex: Female

DRUGS (5)
  1. WELLBUTRIN XL [Suspect]
     Indication: DEPRESSION
     Dosage: 150MG PER DAY
     Route: 048
     Dates: start: 20081101, end: 20081101
  2. EFFEXOR [Concomitant]
  3. VITAMIN [Concomitant]
  4. FOLIC ACID [Concomitant]
  5. LOVAZA [Concomitant]

REACTIONS (5)
  - ORAL DISORDER [None]
  - OROPHARYNGEAL BLISTERING [None]
  - OROPHARYNGEAL PAIN [None]
  - SWELLING FACE [None]
  - SWOLLEN TONGUE [None]
